FAERS Safety Report 4771126-8 (Version None)
Quarter: 2005Q3

REPORT INFORMATION
  Report Type: 
  Country: None (occurrence: None)
  Receive Date: 20050915
  Receipt Date: 20050908
  Transmission Date: 20060218
  Serious: Yes (Death)
  Sender: FDA-Public Use
  Company Number: RO-ABBOTT-05P-135-0310656-00

PATIENT
  Age: 16 Year
  Sex: Female
  Weight: 45 kg

DRUGS (5)
  1. KALETRA [Suspect]
     Indication: ACQUIRED IMMUNODEFICIENCY SYNDROME
     Route: 048
     Dates: start: 20041015, end: 20050907
  2. STAVUDINE [Concomitant]
     Indication: ACQUIRED IMMUNODEFICIENCY SYNDROME
     Route: 048
     Dates: start: 20041015, end: 20050907
  3. LAMIVUDINE [Concomitant]
     Indication: ACQUIRED IMMUNODEFICIENCY SYNDROME
     Route: 048
     Dates: start: 20041015, end: 20050907
  4. FLUCONAZOLE [Concomitant]
     Indication: CRYPTOCOCCOSIS
     Route: 048
     Dates: start: 20040920, end: 20050907
  5. AMPHOTERICIN B [Concomitant]
     Indication: CRYPTOCOCCOSIS
     Dates: start: 20040101

REACTIONS (1)
  - MENINGITIS CRYPTOCOCCAL [None]
